FAERS Safety Report 8121024-7 (Version None)
Quarter: 2012Q1

REPORT INFORMATION
  Report Type: 
  Country: None (occurrence: None)
  Receive Date: 20120203
  Receipt Date: 20120118
  Transmission Date: 20120608
  Serious: Yes (Hospitalization)
  Sender: FDA-Public Use
  Company Number: COL_10771_2012

PATIENT

DRUGS (3)
  1. SAVACOL ANTISEPTIC MOUTH + THROAT  RINSE ALCOHOL FREE (CHLORHEXIDINE D [Suspect]
     Indication: ORAL DISCOMFORT
     Dosage: (ORAL)
     Route: 048
  2. SAVACOL ANTISEPTIC MOUTH + THROAT  RINSE ALCOHOL FREE (CHLORHEXIDINE D [Suspect]
     Indication: GINGIVITIS
     Dosage: (ORAL)
     Route: 048
  3. SAVACOL ANTISEPTIC MOUTH + THROAT  RINSE ALCOHOL FREE (CHLORHEXIDINE D [Suspect]
     Indication: DENTAL PLAQUE
     Dosage: (ORAL)
     Route: 048

REACTIONS (2)
  - PRODUCT CONTAMINATION [None]
  - POOR QUALITY DRUG ADMINISTERED [None]
